FAERS Safety Report 8470487-6 (Version None)
Quarter: 2012Q2

REPORT INFORMATION
  Report Type: 
  Country: None (occurrence: None)
  Receive Date: 20120323
  Receipt Date: 20111128
  Transmission Date: 20120825
  Serious: Yes (Hospitalization)
  Sender: FDA-Public Use
  Company Number: 163-21880-11101364

PATIENT
  Age: 63 Year
  Sex: Male

DRUGS (4)
  1. REVLIMID [Suspect]
     Indication: CHRONIC LYMPHOCYTIC LEUKAEMIA
     Dosage: 10 MG, 1 IN 1 D, PO
     Route: 048
     Dates: start: 20110801, end: 20110801
  2. RITUXAN [Concomitant]
  3. ADRIAMYCIN PFS [Concomitant]
  4. CYTOXAN [Concomitant]

REACTIONS (4)
  - PYREXIA [None]
  - DISEASE PROGRESSION [None]
  - CHRONIC LYMPHOCYTIC LEUKAEMIA [None]
  - CHILLS [None]
